FAERS Safety Report 6340933-2 (Version None)
Quarter: 2009Q3

REPORT INFORMATION
  Report Type: 
  Country: None (occurrence: None)
  Receive Date: 20090902
  Receipt Date: 20090902
  Transmission Date: 20100115
  Serious: Yes (Hospitalization)
  Sender: FDA-Public Use
  Company Number: None

PATIENT
  Age: 62 Year
  Sex: Male
  Weight: 68.7 kg

DRUGS (2)
  1. ATENOLOL [Suspect]
     Indication: ATRIAL FIBRILLATION
     Dosage: 12.5 MG EVERY DAY PO
     Route: 048
     Dates: start: 20080318, end: 20090826
  2. ATENOLOL [Suspect]
     Indication: HYPERTENSION
     Dosage: 12.5 MG EVERY DAY PO
     Route: 048
     Dates: start: 20080318, end: 20090826

REACTIONS (3)
  - FALL [None]
  - HYPOTENSION [None]
  - SINUS BRADYCARDIA [None]
